FAERS Safety Report 4999509-1 (Version None)
Quarter: 2006Q2

REPORT INFORMATION
  Report Type: 
  Country: None (occurrence: None)
  Receive Date: 20060511
  Receipt Date: 20060504
  Transmission Date: 20061013
  Serious: Yes (Other)
  Sender: FDA-Public Use
  Company Number: PHEH2006US05905

PATIENT
  Age: 80 Year
  Sex: Female

DRUGS (2)
  1. FEMARA [Concomitant]
     Indication: BREAST CANCER
  2. ZOMETA [Suspect]
     Indication: BREAST CANCER METASTATIC
     Dosage: 4 MG, QMO

REACTIONS (1)
  - OSTEONECROSIS [None]
